FAERS Safety Report 4369838-3 (Version None)
Quarter: 2004Q2

REPORT INFORMATION
  Report Type: 
  Country: None (occurrence: None)
  Receive Date: 20040527
  Receipt Date: 20040518
  Transmission Date: 20050107
  Serious: Yes (Other)
  Sender: FDA-Public Use
  Company Number: 2004032966

PATIENT
  Sex: Female

DRUGS (1)
  1. ELETRIPTAN (ELETRIPTAN) [Suspect]
     Indication: ILL-DEFINED DISORDER
     Dosage: PRN, ORAL
     Route: 048
     Dates: start: 20040101

REACTIONS (2)
  - DRUG INEFFECTIVE [None]
  - HEMIPLEGIA [None]
